FAERS Safety Report 14651129 (Version 1)
Quarter: 2018Q1

REPORT INFORMATION
  Report Type: Spontaneous
  Country: GB (occurrence: GB)
  Receive Date: 20180316
  Receipt Date: 20180316
  Transmission Date: 20180509
  Serious: Yes (Life-Threatening, Disabling, Other)
  Sender: FDA-Public Use
  Company Number: GB-PFIZER INC-2018106610

PATIENT
  Age: 40 Year
  Sex: Male
  Weight: 105 kg

DRUGS (3)
  1. BACLOFEN. [Concomitant]
     Active Substance: BACLOFEN
     Dosage: 30 MG, ONCE A DAY
  2. GABAPENTIN. [Suspect]
     Active Substance: GABAPENTIN
     Indication: MUSCLE SPASMS
     Dosage: 200MG 3 TIMES DAILY, INCREASING 100MG EVERY 3 DAYS, TO 600MG 3 TIMES DAILY
     Route: 048
     Dates: start: 20170101
  3. GABAPENTIN. [Suspect]
     Active Substance: GABAPENTIN
     Dosage: 200MG 3 TIMES DAILY, INCREASING 100MG EVERY 3 DAYS, TO 600MG 3 TIMES DAILY
     Route: 048
     Dates: start: 20171006

REACTIONS (14)
  - Neck pain [Recovering/Resolving]
  - Amnesia [Recovering/Resolving]
  - Abdominal distension [Recovering/Resolving]
  - Dissociation [Recovering/Resolving]
  - Clumsiness [Recovering/Resolving]
  - Euphoric mood [Unknown]
  - Product use in unapproved indication [Unknown]
  - Back pain [Recovering/Resolving]
  - Dysphagia [Recovering/Resolving]
  - Abnormal weight gain [Recovering/Resolving]
  - Depression [Recovering/Resolving]
  - Suicidal ideation [Recovering/Resolving]
  - Abdominal pain upper [Recovering/Resolving]
  - Mood swings [Unknown]

NARRATIVE: CASE EVENT DATE: 20170101
